FAERS Safety Report 6145462-7 (Version None)
Quarter: 2009Q2

REPORT INFORMATION
  Report Type: 
  Country: None (occurrence: None)
  Receive Date: 20090402
  Receipt Date: 20090324
  Transmission Date: 20091009
  Serious: Yes (Other)
  Sender: FDA-Public Use
  Company Number: 230303

PATIENT
  Age: 34 Year
  Sex: Male

DRUGS (12)
  1. ETOPOSIDE [Suspect]
     Indication: HODGKIN'S DISEASE
     Dates: start: 20050101
  2. THERAPEUTIC RADIOPHARMACEUTICALS [Suspect]
     Indication: HODGKIN'S DISEASE
  3. MUSTARGEN [Concomitant]
  4. DOXORUBICIN HCL [Suspect]
     Indication: HODGKIN'S DISEASE
  5. IFOSFAMIDE [Suspect]
     Indication: HODGKIN'S DISEASE
     Dates: start: 20050101
  6. ONCOVIN [Concomitant]
  7. PROCARBAZINE [Concomitant]
  8. PREDNISONE [Concomitant]
  9. BLEOMYCIN [Concomitant]
  10. VINBLASTINE [Concomitant]
  11. DACARBAZINE [Concomitant]
  12. CARBOPLATIN [Concomitant]

REACTIONS (10)
  - ACUTE LYMPHOCYTIC LEUKAEMIA [None]
  - DECREASED APPETITE [None]
  - DISEASE RECURRENCE [None]
  - DIZZINESS [None]
  - HAEMOGLOBIN DECREASED [None]
  - HEADACHE [None]
  - HODGKIN'S DISEASE NODULAR SCLEROSIS STAGE UNSPECIFIED [None]
  - MALAISE [None]
  - PYREXIA [None]
  - STEM CELL TRANSPLANT [None]
